FAERS Safety Report 18362074 (Version 4)
Quarter: 2021Q2

REPORT INFORMATION
  Report Type: Other
  Country: US (occurrence: US)
  Receive Date: 20201009
  Receipt Date: 20210611
  Transmission Date: 20210717
  Serious: Yes (Other)
  Sender: FDA-Public Use
  Company Number: US-ROCHE-2563353

PATIENT
  Age: 62 Year
  Sex: Male
  Weight: 104.42 kg

DRUGS (65)
  1. OCREVUS [Suspect]
     Active Substance: OCRELIZUMAB
     Dosage: FIRST HALF?DOSE (300 MG)
     Route: 042
     Dates: start: 20191022
  2. OXYCODONE [Concomitant]
     Active Substance: OXYCODONE
     Route: 048
  3. OMEPRAZOLE. [Concomitant]
     Active Substance: OMEPRAZOLE
     Route: 065
     Dates: start: 2020
  4. ARICEPT [Concomitant]
     Active Substance: DONEPEZIL HYDROCHLORIDE
     Indication: MEMORY IMPAIRMENT
     Route: 048
  5. ZOLOFT [Concomitant]
     Active Substance: SERTRALINE HYDROCHLORIDE
     Indication: DEPRESSION
     Route: 048
  6. VARICELLA?ZOSTER VACCINE NOS [Concomitant]
     Active Substance: VARICELLA-ZOSTER VACCINE
     Dosage: X 1 (2ND DOSE)
     Dates: start: 20200429
  7. SYMMETREL [Concomitant]
     Active Substance: AMANTADINE HYDROCHLORIDE
     Indication: FATIGUE
     Dosage: 200 MG IN THE MORNING AND 100 MG BEFORE 2PM
     Route: 048
     Dates: start: 2018
  8. PHENERGAN [Concomitant]
     Active Substance: PROMETHAZINE HYDROCHLORIDE
     Indication: NAUSEA
     Route: 048
     Dates: start: 2020
  9. PHENERGAN [Concomitant]
     Active Substance: PROMETHAZINE HYDROCHLORIDE
     Indication: VOMITING
     Route: 065
     Dates: start: 2020
  10. GABAPENTIN. [Concomitant]
     Active Substance: GABAPENTIN
     Route: 065
     Dates: start: 202010
  11. LISINOPRIL. [Concomitant]
     Active Substance: LISINOPRIL
     Route: 065
     Dates: start: 2017
  12. LISINOPRIL. [Concomitant]
     Active Substance: LISINOPRIL
     Route: 048
     Dates: start: 2021
  13. MIRTAZAPINE. [Concomitant]
     Active Substance: MIRTAZAPINE
     Indication: BLOOD PRESSURE MEASUREMENT
     Route: 048
  14. MYRBETRIQ [Concomitant]
     Active Substance: MIRABEGRON
     Indication: NEUROGENIC BLADDER
     Route: 048
     Dates: start: 20200225
  15. SUPER B COMPLEX WITH C [Concomitant]
     Route: 048
  16. MELOXICAM. [Concomitant]
     Active Substance: MELOXICAM
     Indication: SPINAL PAIN
     Route: 048
     Dates: start: 20200924
  17. ZOLOFT [Concomitant]
     Active Substance: SERTRALINE HYDROCHLORIDE
     Dates: start: 2020
  18. MISOPROSTOL. [Concomitant]
     Active Substance: MISOPROSTOL
     Indication: PAIN
     Dosage: FOR 10 DAYS
     Route: 048
     Dates: start: 20200924
  19. MISOPROSTOL. [Concomitant]
     Active Substance: MISOPROSTOL
     Indication: FATIGUE
  20. ACETAMINOPHEN PM [Concomitant]
     Active Substance: ACETAMINOPHEN\DIPHENHYDRAMINE HYDROCHLORIDE
     Dosage: TOTAL OF 1000 MG ACETAMINOPHEN AND 50 MG BENADRYL
     Route: 048
  21. REMERON [Concomitant]
     Active Substance: MIRTAZAPINE
     Route: 048
     Dates: start: 2020, end: 2020
  22. TDAP [Concomitant]
     Active Substance: TETANUS TOXOID, REDUCED DIPHTHERIA TOXOID AND ACELLULAR PERTUSSIS VACCINE ADSORBED, TDAP
  23. GABAPENTIN. [Concomitant]
     Active Substance: GABAPENTIN
     Indication: MULTIPLE SCLEROSIS
     Route: 065
     Dates: start: 2010, end: 202010
  24. OMEPRAZOLE. [Concomitant]
     Active Substance: OMEPRAZOLE
     Indication: EROSIVE OESOPHAGITIS
     Route: 048
  25. DONEPEZIL. [Concomitant]
     Active Substance: DONEPEZIL
     Route: 048
  26. MIRTAZAPINE. [Concomitant]
     Active Substance: MIRTAZAPINE
     Route: 048
  27. VITAMIN D3 [Concomitant]
     Active Substance: CHOLECALCIFEROL
  28. OCREVUS [Suspect]
     Active Substance: OCRELIZUMAB
     Indication: PRIMARY PROGRESSIVE MULTIPLE SCLEROSIS
     Dosage: 600 MG EVERY 6 MONTHS AFTER NEXT 300 MG DOSE
     Route: 042
     Dates: start: 20200228
  29. OCREVUS [Suspect]
     Active Substance: OCRELIZUMAB
     Route: 042
     Dates: start: 2019
  30. BACLOFEN. [Concomitant]
     Active Substance: BACLOFEN
     Indication: MUSCLE SPASMS
     Route: 048
     Dates: start: 2020
  31. BACLOFEN. [Concomitant]
     Active Substance: BACLOFEN
     Route: 048
     Dates: start: 202009
  32. SOLU?MEDROL [Concomitant]
     Active Substance: METHYLPREDNISOLONE SODIUM SUCCINATE
     Indication: PREMEDICATION
     Dosage: METHYLPREDINSONE SOLU?MEDROL SUCCINATE
  33. OXYCODONE HYDROCHLORIDE. [Concomitant]
     Active Substance: OXYCODONE HYDROCHLORIDE
     Indication: SPINAL PAIN
     Route: 048
  34. TOVIAZ [Concomitant]
     Active Substance: FESOTERODINE FUMARATE
     Indication: NEUROGENIC BLADDER
     Route: 048
     Dates: start: 202005, end: 20200605
  35. PREDNISONE. [Concomitant]
     Active Substance: PREDNISONE
  36. ATENOLOL. [Concomitant]
     Active Substance: ATENOLOL
     Indication: HYPERTENSION
     Route: 048
  37. VITAMIN D3 [Concomitant]
     Active Substance: CHOLECALCIFEROL
     Route: 048
  38. NEURONTIN [Concomitant]
     Active Substance: GABAPENTIN
     Route: 048
  39. MELOXICAM. [Concomitant]
     Active Substance: MELOXICAM
     Route: 065
     Dates: start: 202010
  40. DONEPEZIL HCL [Concomitant]
     Active Substance: DONEPEZIL HYDROCHLORIDE
     Route: 048
     Dates: start: 2017, end: 2020
  41. VALSARTAN. [Concomitant]
     Active Substance: VALSARTAN
     Route: 048
     Dates: start: 2020, end: 20210414
  42. GABAPENTIN. [Concomitant]
     Active Substance: GABAPENTIN
     Indication: DEMYELINATION
     Route: 048
  43. PRAZOSIN. [Concomitant]
     Active Substance: PRAZOSIN
     Indication: NEUROGENIC BLADDER
     Route: 048
     Dates: start: 2019, end: 20200224
  44. TYLENOL [Concomitant]
     Active Substance: ACETAMINOPHEN
     Indication: PREMEDICATION
  45. NEURONTIN [Concomitant]
     Active Substance: GABAPENTIN
     Route: 048
     Dates: start: 202009
  46. ZOLOFT [Concomitant]
     Active Substance: SERTRALINE HYDROCHLORIDE
  47. FLUARIX NOS [Concomitant]
     Active Substance: INFLUENZA VIRUS VACCINE
     Dosage: ONE DOSE
     Dates: start: 20200827
  48. VARICELLA?ZOSTER VACCINE NOS [Concomitant]
     Active Substance: VARICELLA-ZOSTER VACCINE
     Dosage: X 1 (FIRST DOSE)
     Dates: start: 20200131
  49. VITAMIN B12 [Concomitant]
     Active Substance: CYANOCOBALAMIN
  50. DIOVAN [Concomitant]
     Active Substance: VALSARTAN
     Indication: HYPERTENSION
  51. DOXYCYCLINE. [Concomitant]
     Active Substance: DOXYCYCLINE
  52. BACLOFEN. [Concomitant]
     Active Substance: BACLOFEN
     Indication: MUSCULOSKELETAL PAIN
     Dosage: ONE TO TWO TABLETS AT BEDTIME
     Route: 048
     Dates: start: 20191021
  53. LISINOPRIL. [Concomitant]
     Active Substance: LISINOPRIL
     Indication: HYPERTENSION
     Route: 048
  54. ATENOLOL. [Concomitant]
     Active Substance: ATENOLOL
     Route: 065
     Dates: start: 2018
  55. LANSPAZOLE [Concomitant]
     Indication: EROSIVE OESOPHAGITIS
     Dates: start: 201910, end: 201910
  56. BENADRYL [Concomitant]
     Active Substance: DIPHENHYDRAMINE HYDROCHLORIDE
     Indication: PREMEDICATION
  57. CLOTRIMAZOLE. [Suspect]
     Active Substance: CLOTRIMAZOLE
     Indication: CANDIDA INFECTION
     Dosage: TAKE FOR 30 DAYS
     Route: 048
     Dates: start: 2020, end: 2020
  58. BACLOFEN. [Concomitant]
     Active Substance: BACLOFEN
     Route: 048
  59. ATENOLOL. [Concomitant]
     Active Substance: ATENOLOL
     Route: 048
  60. ATENOLOL. [Concomitant]
     Active Substance: ATENOLOL
     Route: 065
     Dates: start: 2019
  61. COENZYME Q10 [Concomitant]
     Active Substance: DIETARY SUPPLEMENT\UBIDECARENONE
     Route: 048
  62. VITAMIN D3 [Concomitant]
     Active Substance: CHOLECALCIFEROL
     Route: 048
  63. COENZYME Q10 [Concomitant]
     Active Substance: DIETARY SUPPLEMENT\UBIDECARENONE
     Route: 048
  64. IBUPROFEN. [Concomitant]
     Active Substance: IBUPROFEN
     Indication: OEDEMA
     Route: 048
     Dates: start: 2020
  65. SHINGRIX [Concomitant]
     Active Substance: RECOMBINANT VARICELLA ZOSTER VIRUS (VZV) GLYCOPROTEIN E
     Dosage: FIRST DOSE 31?JAN?2020 + SECOND DOSE 29?APR?2020
     Route: 030
     Dates: start: 20200131, end: 20200131

REACTIONS (28)
  - Throat tightness [Recovered/Resolved]
  - Rash [Unknown]
  - Vomiting [Recovered/Resolved]
  - Paraesthesia [Recovered/Resolved]
  - Oral candidiasis [Not Recovered/Not Resolved]
  - Facial pain [Not Recovered/Not Resolved]
  - Arthralgia [Not Recovered/Not Resolved]
  - Exostosis [Not Recovered/Not Resolved]
  - Tinnitus [Recovering/Resolving]
  - Pain in jaw [Not Recovered/Not Resolved]
  - Musculoskeletal pain [Not Recovered/Not Resolved]
  - Dysphagia [Not Recovered/Not Resolved]
  - Headache [Not Recovered/Not Resolved]
  - Blood pressure increased [Recovered/Resolved]
  - Hypotension [Unknown]
  - Lyme disease [Not Recovered/Not Resolved]
  - Fall [Unknown]
  - Magnetic resonance imaging abnormal [Not Recovered/Not Resolved]
  - Ageusia [Not Recovered/Not Resolved]
  - Cartilage injury [Unknown]
  - Nausea [Recovering/Resolving]
  - Oropharyngeal pain [Unknown]
  - Tremor [Recovered/Resolved]
  - Multiple sclerosis [Not Recovered/Not Resolved]
  - Depression [Unknown]
  - Bone pain [Not Recovered/Not Resolved]
  - Muscle twitching [Recovered/Resolved]
  - Oedema [Not Recovered/Not Resolved]

NARRATIVE: CASE EVENT DATE: 2020
